FAERS Safety Report 22397562 (Version 2)
Quarter: 2024Q4

REPORT INFORMATION
  Report Type: Spontaneous
  Country: JP (occurrence: JP)
  Receive Date: 20230602
  Receipt Date: 20241014
  Transmission Date: 20250115
  Serious: Yes (Other)
  Sender: ASTELLAS
  Company Number: JP-ASTELLAS-2023JP006303

PATIENT
  Age: 17 Year
  Sex: Female

DRUGS (8)
  1. PROGRAF [Suspect]
     Active Substance: TACROLIMUS
     Indication: Immunosuppressant drug therapy
     Route: 065
  2. ELASOMERAN [Suspect]
     Active Substance: ELASOMERAN
     Indication: COVID-19 immunisation
     Route: 065
  3. ELASOMERAN [Suspect]
     Active Substance: ELASOMERAN
     Route: 065
  4. TOZINAMERAN [Suspect]
     Active Substance: TOZINAMERAN
     Route: 065
  5. MYCOPHENOLATE MOFETIL [Concomitant]
     Active Substance: MYCOPHENOLATE MOFETIL
     Indication: Immunosuppressant drug therapy
     Route: 065
  6. PREDNISOLONE [Concomitant]
     Active Substance: PREDNISOLONE
     Indication: Immunosuppressant drug therapy
     Route: 065
  7. EVEROLIMUS [Concomitant]
     Active Substance: EVEROLIMUS
     Indication: Immunosuppressant drug therapy
     Route: 065
  8. EVEROLIMUS [Concomitant]
     Active Substance: EVEROLIMUS
     Dosage: UNK UNK, UNKNOWN FREQ.
     Route: 065

REACTIONS (12)
  - Liver transplant rejection [Recovering/Resolving]
  - Complications of transplanted liver [Recovering/Resolving]
  - Transplant rejection [Recovering/Resolving]
  - Liver transplant rejection [Recovering/Resolving]
  - Transplant rejection [Unknown]
  - Liver transplant rejection [Unknown]
  - Vanishing bile duct syndrome [Unknown]
  - Hepatic fibrosis [Unknown]
  - Icterus index increased [Unknown]
  - Hepatic enzyme increased [Unknown]
  - Hepatic function abnormal [Recovering/Resolving]
  - Hepatic enzyme increased [Unknown]
